FAERS Safety Report 23762280 (Version 1)
Quarter: 2024Q2

REPORT INFORMATION
  Report Type: Spontaneous
  Country: CA (occurrence: CA)
  Receive Date: 20240419
  Receipt Date: 20240419
  Transmission Date: 20240716
  Serious: Yes (Other)
  Sender: FDA-Public Use
  Company Number: CA-TEVA-VS-3183925

PATIENT
  Age: 66 Year
  Sex: Female

DRUGS (1)
  1. CISPLATIN [Suspect]
     Active Substance: CISPLATIN
     Indication: Product used for unknown indication
     Dosage: DOSE FORM:SOLUTION INTRAVENOUS
     Route: 042

REACTIONS (5)
  - Nausea [Unknown]
  - Abdominal pain [Unknown]
  - Chest discomfort [Unknown]
  - Feeling hot [Unknown]
  - Flushing [Unknown]
